FAERS Safety Report 7544778-7 (Version None)
Quarter: 2011Q2

REPORT INFORMATION
  Report Type: 
  Country: None (occurrence: None)
  Receive Date: 20110614
  Receipt Date: 20110531
  Transmission Date: 20111010
  Serious: Yes (Hospitalization)
  Sender: FDA-Public Use
  Company Number: US-BAYER-201032151NA

PATIENT
  Age: 15 Year
  Sex: Female
  Weight: 54.422 kg

DRUGS (9)
  1. ORTHO TRI-CYCLEN [Concomitant]
     Indication: ACNE
  2. YAZ [Suspect]
     Indication: ACNE
     Dosage: UNK
     Route: 048
     Dates: start: 20050101, end: 20080101
  3. DROSPIRENONE AND ETHINYL ESTRADIOL [Suspect]
     Indication: ACNE
     Dosage: UNK
     Route: 048
     Dates: start: 20050101, end: 20080101
  4. IBUPROFEN [Concomitant]
     Dosage: UNK UNK, PRN
     Route: 048
     Dates: start: 20040101
  5. HYDROCODONE BITARTRATE + ACETAMINOPHEN [Concomitant]
     Dosage: UNK
     Dates: start: 20070526
  6. ORTHO TRI-CYCLEN [Concomitant]
     Indication: CONTRACEPTION
     Dosage: UNK
     Route: 048
     Dates: start: 20050101, end: 20100101
  7. RETIN-A MICRO [Concomitant]
     Dosage: UNK
     Dates: start: 20070604
  8. YASMIN [Suspect]
     Indication: ACNE
     Dosage: UNK UNK, UNK
     Route: 048
     Dates: start: 20050101, end: 20080101
  9. HYPERCARE [Concomitant]
     Dosage: UNK UNK, QD
     Route: 003
     Dates: start: 20070430

REACTIONS (2)
  - GALLBLADDER DISORDER [None]
  - ABDOMINAL PAIN [None]
